FAERS Safety Report 24022320 (Version 1)
Quarter: 2024Q2

REPORT INFORMATION
  Report Type: Spontaneous
  Country: SE (occurrence: SE)
  Receive Date: 20240627
  Receipt Date: 20240627
  Transmission Date: 20240715
  Serious: No
  Sender: FDA-Public Use
  Company Number: None

PATIENT
  Age: 74 Year
  Sex: Female

DRUGS (1)
  1. VABYSMO [Suspect]
     Active Substance: FARICIMAB\FARICIMAB-SVOA
     Indication: Neovascular age-related macular degeneration
     Dosage: 120 MG/ML
     Route: 065
     Dates: start: 20231117

REACTIONS (4)
  - Cough [Recovered/Resolved]
  - Sensation of foreign body [Recovered/Resolved]
  - Nasal congestion [Recovered/Resolved]
  - Epistaxis [Recovered/Resolved]
